FAERS Safety Report 6786429-5 (Version None)
Quarter: 2010Q2

REPORT INFORMATION
  Report Type: 
  Country: None (occurrence: None)
  Receive Date: 20100623
  Receipt Date: 20100616
  Transmission Date: 20101027
  Serious: Yes (Hospitalization)
  Sender: FDA-Public Use
  Company Number: A0866411A

PATIENT
  Age: 59 Year
  Sex: Male

DRUGS (1)
  1. AVANDIA [Suspect]
     Indication: DIABETES MELLITUS
     Dosage: 8MG TWICE PER DAY
     Dates: start: 19970101, end: 20060101

REACTIONS (4)
  - CARDIAC FAILURE CONGESTIVE [None]
  - EMOTIONAL DISTRESS [None]
  - ERECTILE DYSFUNCTION [None]
  - FATIGUE [None]
